FAERS Safety Report 5215747-7 (Version None)
Quarter: 2007Q1

REPORT INFORMATION
  Report Type: 
  Country: None (occurrence: None)
  Receive Date: 20070123
  Receipt Date: 20070110
  Transmission Date: 20070707
  Serious: Yes (Hospitalization)
  Sender: FDA-Public Use
  Company Number: US-KINGPHARMUSA00001-K200700021

PATIENT

DRUGS (8)
  1. ALTACE [Suspect]
     Indication: HYPERTENSION
     Dosage: 2.5 MG, QD
     Route: 048
     Dates: start: 20050101, end: 20050701
  2. HYDROCHLOROTHIAZIDE [Suspect]
     Dosage: 12.5 MG, QD
     Route: 048
     Dates: start: 20050101, end: 20050701
  3. SELOKEN                            /00376902/ [Suspect]
     Indication: HYPERTENSION
     Dosage: UNK, QD
     Route: 048
     Dates: start: 20050101, end: 20050701
  4. COUMADIN [Concomitant]
  5. PRADIF [Concomitant]
  6. TRINIPLAS [Concomitant]
  7. FINASTID [Concomitant]
  8. POLASE                             /00196901/ [Concomitant]

REACTIONS (5)
  - BRADYCARDIA [None]
  - HEADACHE [None]
  - HYPOTENSION [None]
  - SYNCOPE [None]
  - VERTIGO [None]
